FAERS Safety Report 15716617 (Version 2)
Quarter: 2018Q4

REPORT INFORMATION
  Report Type: Spontaneous
  Country: FR (occurrence: FR)
  Receive Date: 20181213
  Receipt Date: 20181225
  Transmission Date: 20190205
  Serious: Yes (Hospitalization, Other)
  Sender: FDA-Public Use
  Company Number: FR-AUROBINDO-AUR-APL-2018-059728

PATIENT
  Age: 67 Year
  Sex: Female

DRUGS (12)
  1. MELPHALAN. [Suspect]
     Active Substance: MELPHALAN
     Indication: NON-HODGKIN^S LYMPHOMA STAGE IV
     Dosage: ON DAY -2 (BEAM THERAPY)
     Route: 065
  2. ETOPOSIDE. [Suspect]
     Active Substance: ETOPOSIDE
     Indication: NON-HODGKIN^S LYMPHOMA STAGE IV
     Dosage: 200 MILLIGRAM/SQ. METER, FROM DAY -6 TO DAY -3 (BEAM THERAPY)
     Route: 065
  3. ETOPOSIDE. [Suspect]
     Active Substance: ETOPOSIDE
     Dosage: 100 MILLIGRAM/SQ. METER
     Route: 065
  4. DEXAMETHASONE. [Suspect]
     Active Substance: DEXAMETHASONE
     Indication: NON-HODGKIN^S LYMPHOMA STAGE IV
     Dosage: PART OF R-DHAO THERAPY
     Route: 065
  5. MOZOBIL [Concomitant]
     Active Substance: PLERIXAFOR
     Indication: HAEMATOPOIETIC STEM CELL MOBILISATION
     Dosage: UNK
     Route: 065
  6. OXALIPLATIN. [Suspect]
     Active Substance: OXALIPLATIN
     Indication: NON-HODGKIN^S LYMPHOMA STAGE IV
     Dosage: 130 MILLIGRAM/SQ. METER, PART OF R-DHAO THERAPY
     Route: 065
  7. IMMUNOGLOBULIN                     /00025201/ [Concomitant]
     Active Substance: HUMAN IMMUNOGLOBULIN G
     Indication: PRODUCT USED FOR UNKNOWN INDICATION
     Dosage: UNK
     Route: 042
  8. ARACYTINE [Suspect]
     Active Substance: CYTARABINE
     Indication: NON-HODGKIN^S LYMPHOMA STAGE IV
     Dosage: 2 MILLIGRAM/SQ. METER
     Route: 065
  9. ARACYTINE [Suspect]
     Active Substance: CYTARABINE
     Dosage: 1 G/SQ. METER, EVERY 12 HOURS
     Route: 065
  10. BENDAMUSTINE [Suspect]
     Active Substance: BENDAMUSTINE
     Indication: NON-HODGKIN^S LYMPHOMA STAGE IV
     Dosage: ON DAY -7 AND DAY -6 (BEAM THERAPY)
     Route: 065
  11. RITUXIMAB. [Suspect]
     Active Substance: RITUXIMAB
     Indication: NON-HODGKIN^S LYMPHOMA STAGE IV
     Dosage: PART OF R-DHAO THERAPY
     Route: 065
  12. ARACYTINE [Suspect]
     Active Substance: CYTARABINE
     Dosage: 2 G/M2, EVERY 12 HOURS
     Route: 065

REACTIONS (7)
  - Toxicity to various agents [Recovered/Resolved]
  - Diarrhoea [Unknown]
  - Dehydration [Unknown]
  - Ascites [Recovered/Resolved]
  - Vomiting [Unknown]
  - Acute kidney injury [Unknown]
  - Venoocclusive liver disease [Unknown]
